FAERS Safety Report 13480241 (Version 1)
Quarter: 2017Q2

REPORT INFORMATION
  Report Type: Not Available
  Country: None (occurrence: US)
  Receive Date: 20170425
  Receipt Date: 20170425
  Transmission Date: 20170830
  Serious: No
  Sender: FDA-Public Use
  Company Number: US-AKORN- 44022

PATIENT

DRUGS (1)
  1. NYSTATIN ORAL SUSPENSION, USP [Suspect]
     Active Substance: NYSTATIN

REACTIONS (2)
  - Burning sensation [Recovered/Resolved]
  - Dysgeusia [Recovered/Resolved]
